FAERS Safety Report 6462076-X (Version None)
Quarter: 2009Q4

REPORT INFORMATION
  Report Type: 
  Country: None (occurrence: None)
  Receive Date: 20091130
  Receipt Date: 20091005
  Transmission Date: 20100525
  Serious: Yes (Other)
  Sender: FDA-Public Use
  Company Number: PHHY2009ZA42171

PATIENT
  Sex: Female

DRUGS (3)
  1. RITALIN LA [Suspect]
     Indication: ATTENTION DEFICIT/HYPERACTIVITY DISORDER
     Dosage: 20 MG, UNK
  2. PROZAC [Concomitant]
     Dosage: 60 MG, UNK
  3. DIOTROXIN [Concomitant]
     Dosage: 1 DF, PER DAY

REACTIONS (11)
  - ABORTION SPONTANEOUS [None]
  - ANXIETY [None]
  - CAESAREAN SECTION [None]
  - DRUG EXPOSURE DURING PREGNANCY [None]
  - EXPIRED DRUG ADMINISTERED [None]
  - FEELING ABNORMAL [None]
  - HEADACHE [None]
  - INAPPROPRIATE SCHEDULE OF DRUG ADMINISTRATION [None]
  - PREGNANCY [None]
  - THYROID DISORDER [None]
  - TREATMENT NONCOMPLIANCE [None]
